FAERS Safety Report 13249937 (Version 1)
Quarter: 2017Q1

REPORT INFORMATION
  Report Type: Spontaneous
  Country: US (occurrence: US)
  Receive Date: 20170218
  Receipt Date: 20170218
  Transmission Date: 20170428
  Serious: No
  Sender: FDA-Public Use
  Company Number: US-ALLERGAN-1664598US

PATIENT
  Sex: Female

DRUGS (3)
  1. RESTASIS [Suspect]
     Active Substance: CYCLOSPORINE
     Indication: ASTHENIA
  2. RESTASIS [Suspect]
     Active Substance: CYCLOSPORINE
     Indication: ARTHRALGIA
  3. RESTASIS [Suspect]
     Active Substance: CYCLOSPORINE
     Indication: MYALGIA
     Dosage: UNK UNK, QD
     Route: 047

REACTIONS (5)
  - Off label use [Unknown]
  - Myalgia [Unknown]
  - Arthralgia [Unknown]
  - Asthenia [Unknown]
  - Inappropriate schedule of drug administration [Unknown]
